FAERS Safety Report 7648048-8 (Version None)
Quarter: 2011Q3

REPORT INFORMATION
  Report Type: 
  Country: None (occurrence: None)
  Receive Date: 20110801
  Receipt Date: 20110727
  Transmission Date: 20111222
  Serious: Yes (Other)
  Sender: FDA-Public Use
  Company Number: FI-AMGEN-FINSP2011038039

PATIENT
  Sex: Male

DRUGS (1)
  1. VECTIBIX [Suspect]
     Indication: COLORECTAL CANCER
     Dosage: UNK
     Dates: start: 20110301

REACTIONS (3)
  - PULMONARY EMBOLISM [None]
  - LUNG INFECTION [None]
  - LOWER RESPIRATORY TRACT INFLAMMATION [None]
